APPROVED DRUG PRODUCT: DICYCLOMINE HYDROCHLORIDE
Active Ingredient: DICYCLOMINE HYDROCHLORIDE
Strength: 10MG/5ML
Dosage Form/Route: SYRUP;ORAL
Application: A214721 | Product #001 | TE Code: AA
Applicant: NOVITIUM PHARMA LLC
Approved: Apr 23, 2021 | RLD: No | RS: No | Type: RX